FAERS Safety Report 9372688 (Version 1)
Quarter: 2013Q2

REPORT INFORMATION
  Report Type: Report from Study
  Country: US (occurrence: US)
  Receive Date: 20130627
  Receipt Date: 20130627
  Transmission Date: 20140414
  Serious: Yes (Other)
  Sender: FDA-Public Use
  Company Number: US-MYLANLABS-2013S1005858

PATIENT
  Age: 81 Year
  Sex: Male

DRUGS (10)
  1. CLOZAPINE TABLETS [Suspect]
     Indication: PSYCHOTIC DISORDER
     Route: 048
     Dates: end: 2013
  2. CLOZAPINE TABLETS [Suspect]
     Indication: PARANOIA
     Route: 048
     Dates: end: 2013
  3. CLOZAPINE TABLETS [Suspect]
     Indication: PSYCHOTIC DISORDER
     Route: 048
     Dates: start: 2013
  4. CLOZAPINE TABLETS [Suspect]
     Indication: PARANOIA
     Route: 048
     Dates: start: 2013
  5. VERAPAMIL [Concomitant]
  6. MIDODRINE [Concomitant]
  7. CARBIDOPA/LEVODOPA [Concomitant]
  8. VITAMIN D [Concomitant]
  9. METAMUCIL [Concomitant]
  10. ASPIRIN [Concomitant]

REACTIONS (1)
  - Leukopenia [Recovered/Resolved]
